FAERS Safety Report 25989786 (Version 1)
Quarter: 2025Q4

REPORT INFORMATION
  Report Type: Spontaneous
  Country: US (occurrence: US)
  Receive Date: 20251103
  Receipt Date: 20251103
  Transmission Date: 20260118
  Serious: Yes (Other)
  Sender: AMGEN
  Company Number: US-AMGEN-USASP2025214516

PATIENT
  Age: 58 Year
  Sex: Male

DRUGS (14)
  1. PREDNISONE [Suspect]
     Active Substance: PREDNISONE
     Indication: Herpes simplex
     Dosage: 30 MILLIGRAM
     Route: 048
  2. PREDNISONE [Suspect]
     Active Substance: PREDNISONE
     Indication: Necrotising retinitis
  3. AFLIBERCEPT [Suspect]
     Active Substance: AFLIBERCEPT
     Indication: Cystoid macular oedema
     Dosage: 2 MILLIGRAM (2 MG IN 0.05CC) OVER A 10-MONTH PERIOD
  4. DIMETHICONE [Suspect]
     Active Substance: DIMETHICONE
     Indication: Rhegmatogenous retinal detachment
     Dosage: UNK
     Route: 065
  5. VALACYCLOVIR [Concomitant]
     Active Substance: VALACYCLOVIR HYDROCHLORIDE
     Indication: Prophylaxis
     Dosage: 2 GRAM, TID
     Route: 048
  6. VALACYCLOVIR [Concomitant]
     Active Substance: VALACYCLOVIR HYDROCHLORIDE
     Indication: Herpes simplex
     Dosage: 1 GRAM, TID
     Route: 048
  7. VALACYCLOVIR [Concomitant]
     Active Substance: VALACYCLOVIR HYDROCHLORIDE
     Indication: Necrotising retinitis
  8. FOSCARNET [Concomitant]
     Active Substance: FOSCARNET
     Indication: Herpes simplex
     Dosage: UNK
  9. FOSCARNET [Concomitant]
     Active Substance: FOSCARNET
     Indication: Necrotising retinitis
  10. PREDNISOLONE [Concomitant]
     Active Substance: PREDNISOLONE
     Indication: Cystoid macular oedema
     Dosage: UNK
     Route: 061
  11. KETOROLAC [Concomitant]
     Active Substance: KETOROLAC TROMETHAMINE
     Indication: Cystoid macular oedema
     Dosage: UNK
     Route: 061
  12. KETOROLAC [Concomitant]
     Active Substance: KETOROLAC TROMETHAMINE
     Dosage: UNK, QID
     Route: 061
  13. DIFLUPREDNATE [Concomitant]
     Active Substance: DIFLUPREDNATE
     Indication: Cystoid macular oedema
     Dosage: UNK, Q2H
     Route: 061
  14. TRIAMCINOLONE [Concomitant]
     Active Substance: TRIAMCINOLONE
     Indication: Cystoid macular oedema
     Dosage: 40 MILLIGRAM (THREE 40 MG DOSES OF SUB-TENON INJECTIONS)
     Route: 047

REACTIONS (4)
  - Cystoid macular oedema [Recovered/Resolved]
  - Rhegmatogenous retinal detachment [Unknown]
  - Drug ineffective for unapproved indication [Unknown]
  - Off label use [Unknown]
